FAERS Safety Report 22312895 (Version 1)
Quarter: 2023Q2

REPORT INFORMATION
  Report Type: Report from Study
  Country: US (occurrence: US)
  Receive Date: 20230512
  Receipt Date: 20230512
  Transmission Date: 20230722
  Serious: Yes (Other)
  Sender: FDA-Public Use
  Company Number: US-002147023-NVSC2023US107617

PATIENT
  Sex: Male

DRUGS (3)
  1. FLUOROURACIL [Suspect]
     Active Substance: FLUOROURACIL
     Indication: Ductal adenocarcinoma of pancreas
     Dosage: UNK, Q2W (EVERY 2 WEEKS)
     Route: 065
     Dates: start: 202209, end: 202302
  2. OXALIPLATIN [Suspect]
     Active Substance: OXALIPLATIN
     Indication: Ductal adenocarcinoma of pancreas
     Dosage: UNK, Q2W (EVERY 2 WEEKS)
     Route: 065
     Dates: start: 202209, end: 202302
  3. IRINOTECAN [Suspect]
     Active Substance: IRINOTECAN
     Indication: Ductal adenocarcinoma of pancreas
     Dosage: UNK, Q2W (EVERY 2 WEEKS)
     Route: 065
     Dates: start: 202209, end: 202302

REACTIONS (3)
  - Malignant neoplasm progression [Unknown]
  - Ductal adenocarcinoma of pancreas [Unknown]
  - Product use in unapproved indication [Unknown]
